FAERS Safety Report 16594871 (Version 3)
Quarter: 2019Q3

REPORT INFORMATION
  Report Type: Report from Study
  Country: TW (occurrence: KR)
  Receive Date: 20190718
  Receipt Date: 20190724
  Transmission Date: 20191004
  Serious: Yes (Hospitalization, Other)
  Sender: FDA-Public Use
  Company Number: TW-BRISTOL-MYERS SQUIBB COMPANY-BMS-2019-067801

PATIENT
  Age: 41 Year
  Sex: Female
  Weight: 54 kg

DRUGS (8)
  1. CAPECITABINE. [Suspect]
     Active Substance: CAPECITABINE
     Indication: GASTRIC CANCER
     Dosage: 1600 MILLIGRAM, BID
     Route: 048
     Dates: start: 20171218
  2. DESOWEN [Concomitant]
     Active Substance: DESONIDE
     Indication: PRURITUS
     Dosage: 120 MILLILITER
     Route: 061
     Dates: start: 20190508
  3. MACPERAN [Concomitant]
     Active Substance: METOCLOPRAMIDE HYDROCHLORIDE
     Indication: NAUSEA
     Dosage: 5 MILLIGRAM
     Route: 048
     Dates: start: 20171227
  4. MEGACE F [Concomitant]
     Indication: DECREASED APPETITE
     Dosage: 5 MILLILITER
     Route: 048
     Dates: start: 20180115
  5. FEROBA [Concomitant]
     Active Substance: FERROUS SULFATE\PROTEASE
     Indication: ANAEMIA
     Dosage: 256.26 MILLIGRAM
     Route: 048
     Dates: start: 20180430
  6. NIVOLUMAB [Suspect]
     Active Substance: NIVOLUMAB
     Indication: GASTRIC CANCER
     Dosage: 360 MILLIGRAM
     Route: 042
     Dates: start: 20171218
  7. OXALIPLATIN. [Suspect]
     Active Substance: OXALIPLATIN
     Indication: GASTRIC CANCER
     Dosage: 130 MILLIGRAM/SQ. METER
     Route: 042
     Dates: start: 20171218
  8. XYZAL [Concomitant]
     Active Substance: LEVOCETIRIZINE DIHYDROCHLORIDE
     Indication: RASH
     Dosage: 5 MILLIGRAM
     Route: 048
     Dates: start: 20190508

REACTIONS (1)
  - Azotaemia [Recovered/Resolved]

NARRATIVE: CASE EVENT DATE: 20190705
